FAERS Safety Report 26118202 (Version 3)
Quarter: 2025Q4

REPORT INFORMATION
  Report Type: Spontaneous
  Country: EU (occurrence: EU)
  Receive Date: 20251203
  Receipt Date: 20251210
  Transmission Date: 20260118
  Serious: Yes (Other)
  Sender: MYLAN
  Company Number: EU-TAKEDA-2025TUS102456

PATIENT

DRUGS (4)
  1. ETOPOSIDE [Suspect]
     Active Substance: ETOPOSIDE
     Indication: Hodgkin^s disease refractory
     Dosage: 100 MILLIGRAM/SQ. METER, CYCLE,ON DAYS 1 TO 3
  2. CARBOPLATIN [Suspect]
     Active Substance: CARBOPLATIN
     Indication: Hodgkin^s disease refractory
     Dosage: UNK, CYCLE,AUC 5 ON DAY 2
  3. BRENTUXIMAB VEDOTIN [Suspect]
     Active Substance: BRENTUXIMAB VEDOTIN
     Indication: Hodgkin^s disease refractory
     Dosage: 1.8 MILLIGRAM/KILOGRAM, CYCLE, DAY 1
  4. IFOSFAMIDE [Suspect]
     Active Substance: IFOSFAMIDE
     Indication: Hodgkin^s disease refractory
     Dosage: 5 MILLIGRAM/SQ. METER, CYCLE, ON DAY 2

REACTIONS (1)
  - Toxicity to various agents [Unknown]
